FAERS Safety Report 18590125 (Version 3)
Quarter: 2021Q1

REPORT INFORMATION
  Report Type: Report from Study
  Country: None (occurrence: US)
  Receive Date: 20201207
  Receipt Date: 20210326
  Transmission Date: 20210419
  Serious: Yes (Hospitalization, Other)
  Sender: FDA-Public Use
  Company Number: US-ABBVIE-20K-163-3679287-00

PATIENT
  Age: 66 Year
  Sex: Female
  Weight: 48.58 kg

DRUGS (5)
  1. HUMIRA [Suspect]
     Active Substance: ADALIMUMAB
     Route: 058
     Dates: start: 202102
  2. COVID?19 VACCINE [Concomitant]
     Route: 030
     Dates: start: 202102, end: 202102
  3. COVID?19 VACCINE [Concomitant]
     Indication: COVID-19 IMMUNISATION
     Route: 030
     Dates: start: 202101, end: 202101
  4. HUMIRA [Suspect]
     Active Substance: ADALIMUMAB
     Indication: PSORIATIC ARTHROPATHY
     Route: 058
  5. HUMIRA [Suspect]
     Active Substance: ADALIMUMAB
     Indication: PSORIATIC ARTHROPATHY
     Dosage: CITRATE FREE
     Route: 058
     Dates: start: 2017, end: 202008

REACTIONS (10)
  - Sepsis [Recovering/Resolving]
  - Balance disorder [Recovered/Resolved]
  - Gait disturbance [Unknown]
  - Coma [Unknown]
  - Poisoning [Unknown]
  - Staphylococcal infection [Recovered/Resolved]
  - Loss of personal independence in daily activities [Unknown]
  - Pain [Unknown]
  - Bone lesion [Recovered/Resolved]
  - Emotional distress [Recovered/Resolved]

NARRATIVE: CASE EVENT DATE: 202008
